FAERS Safety Report 8951136 (Version 4)
Quarter: 2013Q4

REPORT INFORMATION
  Report Type: Spontaneous
  Country: US (occurrence: None)
  Receive Date: 20121109
  Receipt Date: 20131025
  Transmission Date: 20140711
  Serious: Yes (Hospitalization, Other)
  Sender: FDA-Public Use
  Company Number: 2012033866

PATIENT
  Sex: Female
  Weight: 54.43 kg

DRUGS (34)
  1. PRIVIGEN (IMMUNE GLOBULIN INTRAVENOUS (HUMAN) 10% LIQUID) [Suspect]
     Indication: IMMUNODEFICIENCY COMMON VARIABLE
     Dosage: 40 G 1X/4 WEEKS, 20 GM OVER 4 TO 6 HOURS  (NOT OTHERWISE SPECIFIED))
     Route: 042
  2. ACETAMINOPHEN (PARACETAMOL) [Concomitant]
  3. DIPHENHYDRAMINE (DIPHENHYDRAMINE) [Concomitant]
  4. HEPARIN (HEPARIN) [Concomitant]
  5. SODIUM CHLORIDE [Concomitant]
  6. EPIPEN (EPINEPHRINE) [Concomitant]
  7. LEVAQUIN (LEVOFLOXACIN) [Concomitant]
  8. KLONOPIN (CLONAZEPAM) [Concomitant]
  9. DULERA (FORMOTEROL) [Concomitant]
  10. TRAMADOL [Concomitant]
  11. LORATAB (LORATADINE) [Concomitant]
  12. ALVESCO (CICLESONIDE) [Concomitant]
  13. DEXILANT (ALL OTHER THERAPEUTIC PRODUCTS) [Concomitant]
  14. MULTIVITAMIN (VITAMINS NOS) [Concomitant]
  15. VITAMIN D3 (COLECALCIFEROL) [Concomitant]
  16. SINGULAIR [Concomitant]
  17. LIPITOR (ATORVASTATIN CALCIUM) [Concomitant]
  18. BIAXIN (CLARITHROMYCIN) [Concomitant]
  19. ACIPHEN (DIETHYLAMINE SALICYLATE) [Concomitant]
  20. FOLIC ACID [Concomitant]
  21. ZETIA (EZETIMIBE) [Concomitant]
  22. EFFEXOR (VENLAFAXINE) [Concomitant]
  23. ASPIRIN (ACETYLSALICYLIC ACID) [Concomitant]
  24. ADVAIR (SERETIDE) [Concomitant]
  25. GRALISE (GABAPENTIN) [Concomitant]
  26. FLAGYL [Concomitant]
  27. CIPRO [Concomitant]
  28. VALTREX [Concomitant]
  29. LORTAB [Concomitant]
  30. ACIPHEX [Concomitant]
  31. BYSTOLIC [Concomitant]
  32. CITRUS BIOFLAVONOIDS [Concomitant]
  33. ZYRTEC (CETIRIZINE HYDROCHLORIDE) [Concomitant]
  34. BACLOFEN [Concomitant]

REACTIONS (4)
  - Staphylococcal infection [None]
  - Headache [None]
  - Chest pain [None]
  - Incorrect drug administration rate [None]
